FAERS Safety Report 10183850 (Version 3)
Quarter: 2014Q2

REPORT INFORMATION
  Report Type: Report from Study
  Country: DE (occurrence: DE)
  Receive Date: 20140520
  Receipt Date: 20140626
  Transmission Date: 20141212
  Serious: Yes (Hospitalization)
  Sender: FDA-Public Use
  Company Number: DE-TEVA-482633USA

PATIENT
  Age: 75 Year
  Sex: Female
  Weight: 62 kg

DRUGS (8)
  1. BENDAMUSTINE [Suspect]
     Indication: PRODUCT USED FOR UNKNOWN INDICATION
     Route: 042
     Dates: start: 20140417, end: 20140417
  2. BENDAMUSTINE [Suspect]
     Route: 042
     Dates: start: 20140418, end: 20140418
  3. BENDAMUSTINE [Suspect]
     Dosage: UNK, UNKNOWN FREQ.
     Route: 042
     Dates: end: 20140429
  4. REVLIMID [Suspect]
     Indication: PRODUCT USED FOR UNKNOWN INDICATION
     Dosage: UNKNOWN FREQUENCY
     Route: 048
     Dates: start: 20140417, end: 20140429
  5. DEXAMETHASONE [Suspect]
     Indication: PRODUCT USED FOR UNKNOWN INDICATION
     Dosage: 40 MG, DAY 1,3, 15,22
     Route: 048
     Dates: start: 20140417
  6. VOMEX A [Concomitant]
     Indication: VOMITING
     Dosage: UNK UNK, UNKNOWN FREQ.
     Route: 042
     Dates: start: 20140429, end: 20140429
  7. ONDASETRON                         /00955301/ [Concomitant]
     Indication: NAUSEA
     Route: 042
     Dates: start: 20140417, end: 20140418
  8. OMEPRAZOLE [Concomitant]
     Indication: PROPHYLAXIS
     Route: 048
     Dates: start: 20140422

REACTIONS (4)
  - Nausea [Recovering/Resolving]
  - Vomiting [Recovering/Resolving]
  - Vomiting [Recovered/Resolved]
  - Dyspepsia [Recovered/Resolved]
